FAERS Safety Report 6693072-5 (Version None)
Quarter: 2010Q2

REPORT INFORMATION
  Report Type: 
  Country: None (occurrence: None)
  Receive Date: 20100422
  Receipt Date: 20100419
  Transmission Date: 20101027
  Serious: Yes (Death, Other)
  Sender: FDA-Public Use
  Company Number: JP-ELI_LILLY_AND_COMPANY-JP200806002913

PATIENT
  Age: 75 Year
  Sex: Female

DRUGS (8)
  1. GEMZAR [Suspect]
     Indication: PANCREATIC CARCINOMA STAGE III
     Dosage: 1000 MG, OTHER
     Route: 042
     Dates: start: 20070904, end: 20071015
  2. PROTECADIN [Concomitant]
     Route: 048
  3. WARFARIN SODIUM [Concomitant]
     Route: 048
  4. URSO 250 [Concomitant]
     Route: 048
  5. LOXONIN [Concomitant]
     Route: 048
  6. STARSIS [Concomitant]
     Route: 048
  7. PRIMPERAN                               /SCH/ [Concomitant]
     Route: 042
  8. ZOFRAN [Concomitant]
     Route: 042

REACTIONS (6)
  - ASCITES [None]
  - DISSEMINATED INTRAVASCULAR COAGULATION [None]
  - MULTI-ORGAN FAILURE [None]
  - PLEURAL EFFUSION [None]
  - TUMOUR LYSIS SYNDROME [None]
  - WHITE BLOOD CELL COUNT DECREASED [None]
